FAERS Safety Report 7480334-7 (Version None)
Quarter: 2011Q2

REPORT INFORMATION
  Report Type: 
  Country: None (occurrence: None)
  Receive Date: 20110512
  Receipt Date: 20110512
  Transmission Date: 20111010
  Serious: No
  Sender: FDA-Public Use
  Company Number: None

PATIENT
  Sex: Female
  Weight: 104.78 kg

DRUGS (12)
  1. B-12 TABLETS [Concomitant]
  2. GEMCITABINE HYDROCHLORIDE [Suspect]
     Dosage: 148 MG
     Dates: end: 20110502
  3. HYDROCODONE BITARTRATE AND ACETAMINOPHEN [Concomitant]
  4. TAXOTERE [Suspect]
     Dosage: 148 MG
     Dates: end: 20110502
  5. ZOFRAN [Concomitant]
  6. FE-CAPS [Concomitant]
  7. NEULASTA [Suspect]
     Dosage: 6 MG
     Dates: end: 20110503
  8. IBUPROFEN CAPS [Concomitant]
  9. PROCHLORPERAZINE MALEATE [Concomitant]
  10. ACETAMINOPHEN [Concomitant]
  11. DEXAMETHASONE [Concomitant]
  12. LIDOCAINE-PRILOCAINE CREA [Concomitant]

REACTIONS (1)
  - PULMONARY EMBOLISM [None]
